FAERS Safety Report 9580017 (Version 1)
Quarter: 2013Q3

REPORT INFORMATION
  Report Type: Spontaneous
  Country: US (occurrence: None)
  Receive Date: 20130916
  Receipt Date: 20130916
  Transmission Date: 20140515
  Serious: Yes (Hospitalization)
  Sender: FDA-Public Use
  Company Number: JPI-P-025570

PATIENT
  Age: 40 Year
  Sex: Female

DRUGS (3)
  1. XYREM (500 MILLIGRAM/ MILLILITERS, SOLUTION) (SODIUM OXYBATE) [Suspect]
     Indication: NARCOLEPSY
     Dosage: (2.25 GM, 2 IN 1 D)
     Route: 048
     Dates: start: 20120719, end: 2012
  2. IRON [Concomitant]
  3. MULTIVITAMINS [Concomitant]

REACTIONS (4)
  - Migraine [None]
  - Condition aggravated [None]
  - Amnesia [None]
  - Confusional state [None]
